FAERS Safety Report 5299282-6 (Version None)
Quarter: 2007Q2

REPORT INFORMATION
  Report Type: 
  Country: None (occurrence: None)
  Receive Date: 20070410
  Receipt Date: 20060913
  Transmission Date: 20071010
  Serious: Yes (Death)
  Sender: FDA-Public Use
  Company Number: BDI-008616

PATIENT
  Age: 57 Year
  Sex: Male

DRUGS (2)
  1. ISOVUE-370 [Suspect]
     Indication: COMPUTERISED TOMOGRAM
     Dosage: 75 ML ONCE IV
     Route: 042
     Dates: start: 20060905, end: 20060905
  2. BARIUM [Concomitant]

REACTIONS (7)
  - CONFUSIONAL STATE [None]
  - CONVULSION [None]
  - CYANOSIS [None]
  - NAUSEA [None]
  - PULSE ABSENT [None]
  - RESPIRATORY ARREST [None]
  - RESTLESSNESS [None]
